FAERS Safety Report 12701612 (Version 2)
Quarter: 2016Q3

REPORT INFORMATION
  Report Type: Spontaneous
  Country: CN (occurrence: CN)
  Receive Date: 20160831
  Receipt Date: 20160907
  Transmission Date: 20161109
  Serious: Yes (Other)
  Sender: FDA-Public Use
  Company Number: CN-PFIZER INC-2016399155

PATIENT
  Age: 51 Year
  Sex: Female
  Weight: 59 kg

DRUGS (7)
  1. SODIUM CHLORIDE. [Concomitant]
     Active Substance: SODIUM CHLORIDE
     Indication: VEHICLE SOLUTION USE
     Dosage: 50 ML, 1X/DAY
     Route: 041
     Dates: start: 20160320, end: 20160320
  2. PHARMORUBICIN [Suspect]
     Active Substance: EPIRUBICIN
     Dosage: 80 MG, 1X/DAY
     Route: 041
     Dates: start: 20160320, end: 20160321
  3. FLUOROURACIL. [Suspect]
     Active Substance: FLUOROURACIL
     Dosage: 750 MG, 1X/DAY
     Route: 041
     Dates: start: 20160320, end: 20160320
  4. SODIUM CHLORIDE. [Concomitant]
     Active Substance: SODIUM CHLORIDE
     Indication: VEHICLE SOLUTION USE
     Dosage: 250 ML, 1X/DAY
     Route: 041
     Dates: start: 20160320, end: 20160321
  5. CYCLOPHOSPHAMIDE. [Suspect]
     Active Substance: CYCLOPHOSPHAMIDE
     Dosage: 0.8 G, 1X/DAY
     Route: 041
     Dates: start: 20160320, end: 20160320
  6. DEXRAZOXANE. [Suspect]
     Active Substance: DEXRAZOXANE
     Dosage: 1500 MG, 1X/DAY
     Route: 041
     Dates: start: 20160320, end: 20160321
  7. GLUCOSE [Concomitant]
     Active Substance: DEXTROSE
     Indication: VEHICLE SOLUTION USE
     Dosage: 250 ML, 1X/DAY
     Route: 041
     Dates: start: 20160320, end: 20160321

REACTIONS (5)
  - Vomiting [Recovering/Resolving]
  - Nausea [Recovering/Resolving]
  - Bone marrow failure [Recovering/Resolving]
  - Asthenia [Recovering/Resolving]
  - Hyperpyrexia [Recovering/Resolving]

NARRATIVE: CASE EVENT DATE: 20160323
